FAERS Safety Report 9001006 (Version 2)
Quarter: 2013Q2

REPORT INFORMATION
  Report Type: Spontaneous
  Country: BR (occurrence: BR)
  Receive Date: 20130107
  Receipt Date: 20130403
  Transmission Date: 20140414
  Serious: Yes (Other)
  Sender: FDA-Public Use
  Company Number: CHNY2013BR000441

PATIENT
  Age: 65 Year
  Sex: Male

DRUGS (2)
  1. CATAFLAM [Suspect]
     Indication: NEURALGIA
     Dosage: 3 OR 4 TIMES A DAY
     Route: 061
     Dates: start: 20121210, end: 20121226
  2. CATAFLAM [Suspect]
     Indication: NEURALGIA
     Dosage: 3 TO 4 TIMES DAILY
     Route: 061
     Dates: start: 20121210, end: 20121226

REACTIONS (5)
  - Back pain [Unknown]
  - Pain [Unknown]
  - Drug ineffective for unapproved indication [Unknown]
  - Drug administration error [Unknown]
  - Drug effect decreased [None]
